FAERS Safety Report 8533723-3 (Version None)
Quarter: 2012Q3

REPORT INFORMATION
  Report Type: 
  Country: None (occurrence: None)
  Receive Date: 20120724
  Receipt Date: 20120716
  Transmission Date: 20120928
  Serious: Yes (Other)
  Sender: FDA-Public Use
  Company Number: CN-BAYER-2012-071350

PATIENT
  Sex: Male

DRUGS (3)
  1. ASPIRIN [Suspect]
     Indication: ISCHAEMIC HEART DISEASE PROPHYLAXIS
     Dosage: UNK
     Route: 048
     Dates: start: 20120701
  2. BAYASPIRIN (BAIASIPILING) [Concomitant]
     Dosage: 100 MG, QD
  3. GLUCOBAY [Concomitant]

REACTIONS (1)
  - ECCHYMOSIS [None]
